FAERS Safety Report 23940701 (Version 1)
Quarter: 2024Q2

REPORT INFORMATION
  Report Type: Spontaneous
  Country: IL (occurrence: IL)
  Receive Date: 20240605
  Receipt Date: 20240605
  Transmission Date: 20240715
  Serious: Yes (Hospitalization, Other)
  Sender: FDA-Public Use
  Company Number: IL-BAYER-2024A079821

PATIENT
  Age: 76 Year
  Sex: Male

DRUGS (1)
  1. EYLEA [Suspect]
     Active Substance: AFLIBERCEPT
     Indication: Age-related macular degeneration
     Dosage: RIGHT EYE, SOLUTION FOR INJECTION IN PRE-FILLED SYRINGE,40 MG/ML
     Dates: start: 202302, end: 20240520

REACTIONS (5)
  - Visual impairment [Recovered/Resolved]
  - Endophthalmitis [Unknown]
  - Vitrectomy [Unknown]
  - Eye inflammation [Unknown]
  - Drug ineffective [Unknown]

NARRATIVE: CASE EVENT DATE: 20240525
